FAERS Safety Report 5286990-6 (Version None)
Quarter: 2007Q1

REPORT INFORMATION
  Report Type: 
  Country: None (occurrence: None)
  Receive Date: 20070329
  Receipt Date: 20070321
  Transmission Date: 20070707
  Serious: Yes (Death, Hospitalization)
  Sender: FDA-Public Use
  Company Number: 2007SP004764

PATIENT
  Age: 55 Year
  Sex: Female

DRUGS (3)
  1. TEMODAL [Suspect]
     Indication: GLIOBLASTOMA MULTIFORME
     Dosage: 200 MG/M2; QM
  2. DEXAMETHASONE (CON.) [Concomitant]
  3. RADIOTHERAPY (CON.) [Concomitant]

REACTIONS (16)
  - ABDOMINAL PAIN [None]
  - BLOOD PRESSURE DECREASED [None]
  - BONE MARROW FAILURE [None]
  - CONDITION AGGRAVATED [None]
  - CUSHINGOID [None]
  - DIVERTICULUM [None]
  - DYSPNOEA [None]
  - FEBRILE NEUTROPENIA [None]
  - HAEMATOMA [None]
  - HEART RATE INCREASED [None]
  - HEMIPARESIS [None]
  - METABOLIC ACIDOSIS [None]
  - OXYGEN SATURATION DECREASED [None]
  - PSEUDOMONAL SEPSIS [None]
  - RESPIRATORY RATE INCREASED [None]
  - SPLEEN DISORDER [None]
